FAERS Safety Report 8285576 (Version 2)
Quarter: 2012Q4

REPORT INFORMATION
  Report Type: Report from Study
  Country: US (occurrence: US)
  Receive Date: 20111213
  Receipt Date: 20121213
  Transmission Date: 20130627
  Serious: Yes (Hospitalization)
  Sender: FDA-Public Use
  Company Number: US-MYLANLABS-2011S1017758

PATIENT
  Age: 69 Year
  Sex: Male

DRUGS (9)
  1. NOVOLOG [Suspect]
     Indication: TYPE 2 DIABETES MELLITUS
  2. HUMULIN [Suspect]
     Indication: TYPE 2 DIABETES MELLITUS
  3. PLACEBO [Suspect]
     Indication: TYPE 2 DIABETES MELLITUS
     Dates: start: 20100806
  4. DOXYCYCLINE [Suspect]
     Indication: STAPHYLOCOCCAL INFECTION
     Dates: start: 20110606, end: 20110706
  5. BACTRIM [Suspect]
     Indication: STAPHYLOCOCCAL INFECTION
     Dates: start: 20110606, end: 20110706
  6. ASPIRIN [Concomitant]
     Dates: start: 20100730
  7. EZETIMIBE [Concomitant]
     Dates: start: 20100730
  8. SAXAGLIPTIN [Suspect]
     Indication: TYPE 2 DIABETES MELLITUS
     Dates: start: 20100806
  9. AVANDIA [Suspect]
     Indication: TYPE 2 DIABETES MELLITUS

REACTIONS (1)
  - Vomiting [Recovered/Resolved]
